FAERS Safety Report 7169874-8 (Version None)
Quarter: 2010Q4

REPORT INFORMATION
  Report Type: 
  Country: None (occurrence: None)
  Receive Date: 20101217
  Receipt Date: 20101213
  Transmission Date: 20110411
  Serious: Yes (Death, Other)
  Sender: FDA-Public Use
  Company Number: PHHY2010AR22638

PATIENT
  Sex: Male

DRUGS (2)
  1. EXELON [Suspect]
     Indication: DEMENTIA
     Dosage: 4.6 MG, QD
     Route: 062
     Dates: start: 20100303, end: 20100307
  2. EXELON [Suspect]
     Dosage: 4.6 MG, QD
     Route: 062
     Dates: start: 20100311

REACTIONS (6)
  - DEATH [None]
  - HIP SURGERY [None]
  - PARALYSIS [None]
  - SALIVARY HYPERSECRETION [None]
  - SPEECH DISORDER [None]
  - VIITH NERVE PARALYSIS [None]
